FAERS Safety Report 5019575-7 (Version None)
Quarter: 2006Q2

REPORT INFORMATION
  Report Type: 
  Country: None (occurrence: None)
  Receive Date: 20060530
  Receipt Date: 20060515
  Transmission Date: 20061013
  Serious: Yes (Other)
  Sender: FDA-Public Use
  Company Number: CHNY2006JP01577

PATIENT

DRUGS (4)
  1. PURSENNID (NCH)(SENNA GLYCOSIDES (CA SALTS OF PURIFIED SENNA EXTRACT)) [Suspect]
     Dosage: ORAL
     Route: 048
  2. PAXIL [Concomitant]
  3. FLUNITRAZEPAM [Concomitant]
  4. LULLAN (PEROSPIRONE HYDROCHLORIDE) [Concomitant]

REACTIONS (1)
  - HAEMORRHAGE SUBCUTANEOUS [None]
